FAERS Safety Report 9815713 (Version 1)
Quarter: 2014Q1

REPORT INFORMATION
  Report Type: Spontaneous
  Country: JP (occurrence: JP)
  Receive Date: 20140114
  Receipt Date: 20140114
  Transmission Date: 20141002
  Serious: Yes (Other)
  Sender: FDA-Public Use
  Company Number: JP-B.I. PHARMACEUTICALS,INC./RIDGEFIELD-2014-BI-01641NB

PATIENT
  Age: 90 Year
  Sex: Female

DRUGS (1)
  1. MICARDIS [Suspect]
     Dosage: 40 MG
     Route: 048

REACTIONS (1)
  - Dementia [Unknown]
